FAERS Safety Report 23942130 (Version 1)
Quarter: 2024Q2

REPORT INFORMATION
  Report Type: Other
  Country: JP (occurrence: JP)
  Receive Date: 20240605
  Receipt Date: 20240605
  Transmission Date: 20240716
  Serious: Yes (Death, Other)
  Sender: FDA-Public Use
  Company Number: JP-Prasco Laboratories-PRAS20240951

PATIENT
  Sex: Female
  Weight: 41 kg

DRUGS (6)
  1. MIRTAZAPINE [Suspect]
     Active Substance: MIRTAZAPINE
     Indication: Epilepsy
     Dosage: 60 PACKETS
     Route: 048
  2. MIRTAZAPINE [Suspect]
     Active Substance: MIRTAZAPINE
     Indication: Sleep disorder
  3. LACOSAMIDE [Suspect]
     Active Substance: LACOSAMIDE
     Indication: Epilepsy
     Dosage: 63 PACKETS
     Route: 048
  4. LACOSAMIDE [Suspect]
     Active Substance: LACOSAMIDE
     Indication: Sleep disorder
  5. levetiracetam_ [Concomitant]
     Indication: Epilepsy
     Dosage: UNKNOWN
     Route: 065
  6. levetiracetam_ [Concomitant]
     Indication: Sleep disorder

REACTIONS (3)
  - Poisoning deliberate [Fatal]
  - Toxicity to various agents [Fatal]
  - Intentional overdose [Fatal]
